FAERS Safety Report 22174218 (Version 2)
Quarter: 2023Q4

REPORT INFORMATION
  Report Type: Report from Study
  Country: US (occurrence: US)
  Receive Date: 20230405
  Receipt Date: 20231130
  Transmission Date: 20240110
  Serious: Yes (Hospitalization, Other)
  Sender: FDA-Public Use
  Company Number: US-ABBVIE-4714769

PATIENT
  Sex: Female

DRUGS (2)
  1. RINVOQ [Suspect]
     Active Substance: UPADACITINIB
     Indication: Ankylosing spondylitis
     Dosage: FORM STRENGTH: 15 MG
     Route: 048
  2. RINVOQ [Suspect]
     Active Substance: UPADACITINIB
     Indication: Ankylosing spondylitis
     Dosage: FORM STRENGTH: 15 MG,?EXTENDED RELEASE
     Route: 048

REACTIONS (7)
  - Hysterectomy [Recovered/Resolved]
  - Postoperative wound infection [Recovered/Resolved]
  - Procedural pain [Unknown]
  - White blood cell count increased [Unknown]
  - Pneumothorax [Unknown]
  - Intestinal obstruction [Recovered/Resolved]
  - Infection [Unknown]
